FAERS Safety Report 8494964-7 (Version None)
Quarter: 2012Q3

REPORT INFORMATION
  Report Type: 
  Country: None (occurrence: None)
  Receive Date: 20120709
  Receipt Date: 20120705
  Transmission Date: 20120928
  Serious: Yes (Hospitalization)
  Sender: FDA-Public Use
  Company Number: US-BRISTOL-MYERS SQUIBB COMPANY-16677726

PATIENT
  Age: 73 Year
  Sex: Male
  Weight: 78 kg

DRUGS (16)
  1. LORAZEPAM [Concomitant]
  2. ASPIRIN [Concomitant]
  3. FLOMAX [Concomitant]
  4. METAMUCIL-2 [Concomitant]
  5. NITROGLYCERIN [Concomitant]
  6. AVODART [Concomitant]
  7. LOPRESSOR [Concomitant]
  8. MIRALAX [Concomitant]
  9. DEXAMETHASONE SODIUM PHOSPHATE [Concomitant]
  10. BUPROPION HCL [Concomitant]
  11. GLIPIZIDE [Concomitant]
  12. PREVACID [Concomitant]
  13. CARBOPLATIN [Suspect]
     Indication: NON-SMALL CELL LUNG CANCER
     Dates: start: 20120320
  14. LOTREL [Concomitant]
  15. PACLITAXEL [Suspect]
     Indication: NON-SMALL CELL LUNG CANCER
     Dates: start: 20120320
  16. PROCHLORPERAZINE MALEATE [Concomitant]

REACTIONS (1)
  - ANGINA PECTORIS [None]
